FAERS Safety Report 5838378-4 (Version None)
Quarter: 2008Q3

REPORT INFORMATION
  Report Type: 
  Country: None (occurrence: None)
  Receive Date: 20080808
  Receipt Date: 20080730
  Transmission Date: 20090109
  Serious: Yes (Other)
  Sender: FDA-Public Use
  Company Number: DE-AMGEN-UK298521

PATIENT

DRUGS (2)
  1. MIMPARA [Suspect]
     Indication: DRUG USE FOR UNKNOWN INDICATION
  2. LAXATIVES [Concomitant]

REACTIONS (2)
  - BLOOD PARATHYROID HORMONE ABNORMAL [None]
  - DRUG INTERACTION [None]
